FAERS Safety Report 6914855-X (Version None)
Quarter: 2010Q3

REPORT INFORMATION
  Report Type: 
  Country: None (occurrence: None)
  Receive Date: 20100809
  Receipt Date: 20100719
  Transmission Date: 20110219
  Serious: No
  Sender: FDA-Public Use
  Company Number: US-ROXANE LABORATORIES, INC.-2010-RO-00873RO

PATIENT
  Sex: Male

DRUGS (7)
  1. PROPANTHELINE BROMIDE [Suspect]
     Indication: MUSCLE SPASMS
     Dosage: 120 MG
  2. SERTRALINE HYDROCHLORIDE [Suspect]
  3. TIZANIDINE HCL [Concomitant]
     Dosage: 4 MG
  4. BACLOFEN [Concomitant]
     Dosage: 10 MG
  5. MULTI-VITAMIN [Concomitant]
  6. ASPIRIN [Concomitant]
  7. GLYCOPYRROLATE [Concomitant]

REACTIONS (2)
  - ASTHENIA [None]
  - HYPERHIDROSIS [None]
